FAERS Safety Report 4266791-8 (Version None)
Quarter: 2004Q1

REPORT INFORMATION
  Report Type: 
  Country: None (occurrence: None)
  Receive Date: 20040108
  Receipt Date: 20031107
  Transmission Date: 20041129
  Serious: No
  Sender: FDA-Public Use
  Company Number: US-BRISTOL-MYERS SQUIBB COMPANY-12431516

PATIENT
  Age: 71 Year
  Sex: Male

DRUGS (1)
  1. CARDIOLITE [Suspect]
     Indication: SCAN MYOCARDIAL PERFUSION
     Dosage: ROUTE OF ADMINISTRATION: INTRAVENOUS INJECTION
     Route: 042

REACTIONS (1)
  - RASH [None]
